FAERS Safety Report 9191361 (Version 1)
Quarter: 2013Q1

REPORT INFORMATION
  Report Type: Spontaneous
  Country: IT (occurrence: IT)
  Receive Date: 20130326
  Receipt Date: 20130326
  Transmission Date: 20140127
  Serious: Yes (Hospitalization)
  Sender: FDA-Public Use
  Company Number: IT-LUNDBECK-DKLU1089817

PATIENT
  Age: 12 Year
  Sex: Female

DRUGS (3)
  1. ONFI [Suspect]
     Indication: POISONING DELIBERATE
     Route: 048
     Dates: start: 20121111, end: 20121111
  2. TOLEP [Suspect]
     Indication: POISONING DELIBERATE
     Dates: start: 20121111, end: 20121111
  3. DINTOINA [Suspect]
     Indication: POISONING DELIBERATE
     Dates: start: 20121111, end: 20121111

REACTIONS (2)
  - Heart rate abnormal [Recovered/Resolved]
  - Psychomotor retardation [Recovered/Resolved]
